FAERS Safety Report 14038869 (Version 1)
Quarter: 2017Q4

REPORT INFORMATION
  Report Type: Spontaneous
  Country: US (occurrence: US)
  Receive Date: 20171004
  Receipt Date: 20171004
  Transmission Date: 20180321
  Serious: Yes (Other)
  Sender: FDA-Public Use
  Company Number: US-TAKEDA-2017TUS020393

PATIENT

DRUGS (2)
  1. TRINTELLIX [Suspect]
     Active Substance: VORTIOXETINE HYDROBROMIDE
     Indication: MAJOR DEPRESSION
     Dosage: 20 MG, UNK
     Route: 065
  2. REXULTI [Concomitant]
     Active Substance: BREXPIPRAZOLE
     Dosage: 2 MG, UNK

REACTIONS (1)
  - Psychotic disorder [Unknown]
